FAERS Safety Report 12757197 (Version 1)
Quarter: 2016Q3

REPORT INFORMATION
  Report Type: Spontaneous
  Country: ES (occurrence: ES)
  Receive Date: 20160919
  Receipt Date: 20160919
  Transmission Date: 20161109
  Serious: Yes (Death, Hospitalization)
  Sender: FDA-Public Use
  Company Number: ES-ROCHE-1831490

PATIENT
  Age: 60 Year
  Sex: Male

DRUGS (2)
  1. TEMODAL [Concomitant]
     Active Substance: TEMOZOLOMIDE
  2. AVASTIN [Suspect]
     Active Substance: BEVACIZUMAB
     Indication: GLIOBLASTOMA MULTIFORME
     Route: 065

REACTIONS (2)
  - Off label use [Fatal]
  - Peritonitis [Fatal]
